FAERS Safety Report 7058863-X (Version None)
Quarter: 2010Q4

REPORT INFORMATION
  Report Type: 
  Country: None (occurrence: None)
  Receive Date: 20101022
  Receipt Date: 20101015
  Transmission Date: 20110411
  Serious: Yes (Hospitalization)
  Sender: FDA-Public Use
  Company Number: SE-MERCK-1010SWE00011

PATIENT
  Sex: Female

DRUGS (2)
  1. FOSAMAX [Suspect]
     Route: 048
  2. ATENOLOL [Concomitant]
     Route: 048

REACTIONS (3)
  - BONE DISORDER [None]
  - FALL [None]
  - PAIN [None]
